FAERS Safety Report 11677008 (Version 1)
Quarter: 2015Q4

REPORT INFORMATION
  Report Type: Spontaneous
  Country: BR (occurrence: BR)
  Receive Date: 20151028
  Receipt Date: 20151028
  Transmission Date: 20160304
  Serious: Yes (Other)
  Sender: FDA-Public Use
  Company Number: BR-WARNER CHILCOTT, LLC-1043505

PATIENT
  Age: 78 Year
  Sex: Female
  Weight: 56.14 kg

DRUGS (3)
  1. ACTONEL [Suspect]
     Active Substance: RISEDRONATE SODIUM
     Indication: OSTEOPOROSIS
     Route: 048
     Dates: start: 201407, end: 20151010
  2. PURAN [Concomitant]
     Active Substance: LEVOTHYROXINE SODIUM
     Dates: start: 2010
  3. LOSARTAN. [Concomitant]
     Active Substance: LOSARTAN
     Dates: start: 201403

REACTIONS (2)
  - Drug ineffective [Unknown]
  - Renal impairment [Unknown]
